FAERS Safety Report 9455941 (Version 1)
Quarter: 2013Q3

REPORT INFORMATION
  Report Type: Spontaneous
  Country: IT (occurrence: IT)
  Receive Date: 20130813
  Receipt Date: 20130813
  Transmission Date: 20140515
  Serious: Yes (Other)
  Sender: FDA-Public Use
  Company Number: IT-PFIZER INC-2013232814

PATIENT
  Age: 6 Year
  Sex: Male
  Weight: 18 kg

DRUGS (9)
  1. HEPARIN SODIUM [Suspect]
     Dosage: 380 UI/KG
  2. MIDAZOLAM [Concomitant]
     Indication: GENERAL ANAESTHESIA
     Dosage: 0.2 MG/KG, UNK
  3. MIDAZOLAM [Concomitant]
     Dosage: 0.2 MG/KG/HR
     Route: 042
  4. CISATRACURIUM BESILATE [Concomitant]
     Indication: GENERAL ANAESTHESIA
     Dosage: 0.2 MG/KG, UNK
  5. CISATRACURIUM BESILATE [Concomitant]
     Dosage: 0.2 MG/KG/HR
     Route: 042
  6. REMIFENTANIL [Concomitant]
     Indication: GENERAL ANAESTHESIA
     Dosage: 0.5 MCG/KG, UNK
  7. REMIFENTANIL [Concomitant]
     Dosage: 0.25-0.5 MCG/KG/MIN
     Route: 042
  8. AMOXICILLIN SODIUM/CLAVULANATE POTASSIUM [Concomitant]
     Indication: ANTIBIOTIC THERAPY
     Dosage: UNK
  9. METHYLPREDNISOLONE [Concomitant]
     Indication: ANTIBIOTIC THERAPY
     Dosage: 30 MG/KG, UNK

REACTIONS (3)
  - Anaphylactic reaction [Recovered/Resolved]
  - Distributive shock [Recovered/Resolved]
  - Metabolic acidosis [Recovered/Resolved]
